FAERS Safety Report 6935936-0 (Version None)
Quarter: 2010Q3

REPORT INFORMATION
  Report Type: 
  Country: None (occurrence: None)
  Receive Date: 20100816
  Receipt Date: 20100519
  Transmission Date: 20110219
  Serious: Yes (Other)
  Sender: FDA-Public Use
  Company Number: 08-WYE-H15253710

PATIENT
  Age: 24 Year
  Sex: Male
  Weight: 140 kg

DRUGS (3)
  1. TYGACIL [Suspect]
     Indication: OPEN FRACTURE
     Dates: start: 20100514, end: 20100516
  2. TYGACIL [Suspect]
     Indication: STAPHYLOCOCCAL INFECTION
     Dates: start: 20100514, end: 20100516
  3. LEVAQUIN [Concomitant]

REACTIONS (4)
  - HYPOTENSION [None]
  - NAUSEA [None]
  - TACHYCARDIA [None]
  - VOMITING [None]
